FAERS Safety Report 5084731-9 (Version None)
Quarter: 2006Q3

REPORT INFORMATION
  Report Type: 
  Country: None (occurrence: None)
  Receive Date: 20060821
  Receipt Date: 20060815
  Transmission Date: 20061208
  Serious: Yes (Other)
  Sender: FDA-Public Use
  Company Number: GB-JNJFOC-20060803701

PATIENT
  Age: 71 Year
  Sex: Male

DRUGS (9)
  1. IBUPROFEN [Suspect]
     Indication: BACK PAIN
     Route: 048
  2. AMITRIPTYLINE HCL [Concomitant]
  3. ASPIRIN [Concomitant]
  4. ATORVASTATIN CALCIUM [Concomitant]
     Route: 048
  5. DILTIAZEM HCL [Concomitant]
  6. FUROSEMIDE [Concomitant]
  7. GLYCERYL TRINITRATE [Concomitant]
  8. ISOSORBIDE MONONITRATE [Concomitant]
  9. PERINDOPRIL ERUMINE [Concomitant]

REACTIONS (1)
  - ANGINA PECTORIS [None]
